FAERS Safety Report 7385966-2 (Version None)
Quarter: 2011Q1

REPORT INFORMATION
  Report Type: 
  Country: None (occurrence: None)
  Receive Date: 20110331
  Receipt Date: 20110317
  Transmission Date: 20110831
  Serious: Yes (Hospitalization)
  Sender: FDA-Public Use
  Company Number: SE-JNJFOC-20100906945

PATIENT
  Age: 31 Year
  Sex: Female
  Weight: 50 kg

DRUGS (3)
  1. REMICADE [Suspect]
     Indication: COLITIS ULCERATIVE
     Route: 042
  2. FLOXACILLIN SODIUM [Concomitant]
     Indication: INFECTION
     Dosage: FREQUENCY 3
     Route: 048
  3. OXYCODONE [Concomitant]
     Indication: PAIN
     Route: 048

REACTIONS (3)
  - COLECTOMY [None]
  - POSTOPERATIVE ABSCESS [None]
  - COLITIS ULCERATIVE [None]
